FAERS Safety Report 4739231-X (Version None)
Quarter: 2005Q3

REPORT INFORMATION
  Report Type: 
  Country: None (occurrence: None)
  Receive Date: 20050810
  Receipt Date: 20050601
  Transmission Date: 20060218
  Serious: No
  Sender: FDA-Public Use
  Company Number: US-GLAXOSMITHKLINE-A0560751A

PATIENT
  Age: 72 Year
  Sex: Female

DRUGS (7)
  1. PAXIL CR [Suspect]
     Dosage: 12.5MG PER DAY
     Route: 048
  2. PAXIL [Suspect]
     Dosage: 20MG PER DAY
     Route: 048
  3. VENTOLIN [Concomitant]
  4. AEROBID [Concomitant]
  5. FORADIL [Concomitant]
  6. ALBUTEROL [Concomitant]
  7. NEBULIZER [Concomitant]
     Route: 065

REACTIONS (3)
  - ANXIETY [None]
  - DRUG INEFFECTIVE [None]
  - NAUSEA [None]
